FAERS Safety Report 12962174 (Version 1)
Quarter: 2016Q4

REPORT INFORMATION
  Report Type: Spontaneous
  Country: US (occurrence: US)
  Receive Date: 20161121
  Receipt Date: 20161121
  Transmission Date: 20170207
  Serious: No
  Sender: FDA-Public Use
  Company Number: US-PRINSTON PHARMACEUTICAL INC.-2016PRN00001

PATIENT
  Age: 69 Year
  Sex: Female
  Weight: 79.37 kg

DRUGS (24)
  1. UNIQUE E [Concomitant]
     Dosage: UNK
     Dates: start: 2002
  2. LIQUID VITAMIN B 12 METHYLCOBALAMIN [Concomitant]
     Dosage: UNK
     Dates: start: 2002
  3. RED YEAST RICE [Concomitant]
     Active Substance: DIETARY SUPPLEMENT
     Dosage: UNK
     Dates: start: 2002
  4. COQ10 [Concomitant]
     Active Substance: UBIDECARENONE
     Dosage: UNK
     Dates: start: 2002
  5. DJD FACTOR [Concomitant]
     Dosage: UNK
     Dates: start: 2002
  6. NADH [Concomitant]
     Active Substance: NADH
     Dosage: UNK
     Dates: start: 2002
  7. DIGESTIVE ENZYMES [Concomitant]
     Active Substance: UNSPECIFIED INGREDIENT
     Dosage: UNK
     Dates: start: 2002
  8. METOPROLOL. [Concomitant]
     Active Substance: METOPROLOL
     Dosage: UNK
  9. L CARNITINE [Concomitant]
     Active Substance: LEVOCARNITINE
     Dosage: UNK
     Dates: start: 2002
  10. ALA MAX CONTINUOUS RELIEF [Concomitant]
     Dosage: UNK
     Dates: start: 2002
  11. NIACEL [Concomitant]
     Dosage: UNK
     Dates: start: 2002
  12. DETOX-ND (HEAVY METAL DETOX) [Concomitant]
     Dosage: UNK
  13. ZOLPIDEM [Concomitant]
     Active Substance: ZOLPIDEM\ZOLPIDEM TARTRATE
     Dosage: UNK
  14. COMPOUNDED HORMONES BI-EST [Concomitant]
     Dosage: UNK
     Dates: start: 2002
  15. NATURE-THROID [Concomitant]
     Active Substance: THYROID, PORCINE
     Dosage: 16.8 MG, UNK
     Dates: start: 2002
  16. HCTZ [Concomitant]
     Active Substance: HYDROCHLOROTHIAZIDE
     Dosage: UNK
  17. MULTI VITAMIN ALPHABACE [Concomitant]
     Dosage: UNK
  18. EPDHA PLANT OMEGA 3679 [Concomitant]
     Dosage: UNK
     Dates: start: 2002
  19. SELENIUM [Concomitant]
     Active Substance: SELENIUM
     Dosage: UNK
     Dates: start: 2002
  20. IRBESARTAN. [Suspect]
     Active Substance: IRBESARTAN
     Indication: HYPERTENSION
     Dosage: 300 MG, 1X/DAY
     Route: 048
     Dates: start: 20151225, end: 20160101
  21. NAC [Concomitant]
     Dosage: UNK
     Dates: start: 2002
  22. HOMOCYSTEINE FACTORS [Concomitant]
     Dosage: UNK
     Dates: start: 2002
  23. TOCOTRIENOLS [Concomitant]
     Dosage: UNK
     Dates: start: 2002
  24. GPC LIQUID [Concomitant]
     Dosage: UNK
     Dates: start: 2002

REACTIONS (4)
  - Burning sensation [Recovered/Resolved]
  - Paraesthesia [Recovered/Resolved]
  - Cerebral disorder [Recovered/Resolved]
  - Head discomfort [Recovered/Resolved]

NARRATIVE: CASE EVENT DATE: 201512
